FAERS Safety Report 7677533-8 (Version None)
Quarter: 2011Q3

REPORT INFORMATION
  Report Type: 
  Country: None (occurrence: None)
  Receive Date: 20110808
  Receipt Date: 20110728
  Transmission Date: 20111222
  Serious: Yes (Death, Life-Threatening)
  Sender: FDA-Public Use
  Company Number: 997354

PATIENT
  Sex: Male

DRUGS (4)
  1. (LANZUL) [Concomitant]
  2. PACLITAXEL [Suspect]
     Indication: OESOPHAGEAL CARCINOMA
     Dosage: 270 MG MILLIGRAM(S), INTRAVENOUS DRIP
     Route: 041
     Dates: start: 20110625
  3. CARBOPLATIN [Suspect]
     Indication: OESOPHAGEAL CARCINOMA
     Dosage: 400 MG MILLIGRAM(S), INTRAVENOUS DRIP
     Route: 041
     Dates: start: 20110625
  4. ENOXAPARIN SODIUM [Concomitant]

REACTIONS (6)
  - PANCYTOPENIA [None]
  - FEBRILE NEUTROPENIA [None]
  - CONDITION AGGRAVATED [None]
  - HAEMATOTOXICITY [None]
  - SEPTIC SHOCK [None]
  - DIARRHOEA [None]
